FAERS Safety Report 23367222 (Version 3)
Quarter: 2024Q2

REPORT INFORMATION
  Report Type: Spontaneous
  Country: US (occurrence: US)
  Receive Date: 20240104
  Receipt Date: 20240403
  Transmission Date: 20240716
  Serious: Yes (Death)
  Sender: FDA-Public Use
  Company Number: US-PFIZER INC-202300455853

PATIENT
  Age: 79 Year
  Sex: Male
  Weight: 68.95 kg

DRUGS (1)
  1. VYNDAMAX [Suspect]
     Active Substance: TAFAMIDIS
     Indication: Cardiac amyloidosis
     Dosage: 61MG, ONCE A DAY AT NIGHT
     Dates: start: 20230903, end: 20231218

REACTIONS (1)
  - Cardiac failure [Fatal]
